FAERS Safety Report 5911887-5 (Version None)
Quarter: 2008Q4

REPORT INFORMATION
  Report Type: 
  Country: None (occurrence: None)
  Receive Date: 20081008
  Receipt Date: 20081006
  Transmission Date: 20090506
  Serious: Yes (Disabling)
  Sender: FDA-Public Use
  Company Number: GB-BRISTOL-MYERS SQUIBB COMPANY-14359996

PATIENT
  Age: 35 Year
  Sex: Female

DRUGS (6)
  1. SUSTIVA [Suspect]
     Indication: HIV INFECTION
     Route: 048
     Dates: start: 20080529, end: 20080901
  2. BECLOMETHASONE DIPROPIONATE [Concomitant]
  3. LOPERAMIDE HCL [Concomitant]
  4. SALBUTAMOL [Concomitant]
  5. TRUVADA [Concomitant]
  6. METOCLOPRAMIDE [Concomitant]

REACTIONS (2)
  - DYSPNOEA [None]
  - ERYTHEMA MULTIFORME [None]
